FAERS Safety Report 7419911-8 (Version None)
Quarter: 2011Q2

REPORT INFORMATION
  Report Type: 
  Country: None (occurrence: None)
  Receive Date: 20110418
  Receipt Date: 20110131
  Transmission Date: 20111010
  Serious: Yes (Other)
  Sender: FDA-Public Use
  Company Number: US-SANOFI-AVENTIS-2011SA022853

PATIENT
  Sex: Female

DRUGS (6)
  1. ALL OTHER THERAPEUTIC PRODUCTS [Concomitant]
  2. LASIX [Suspect]
     Route: 048
  3. FLUOXETINE [Concomitant]
  4. BUDESONIDE/FORMOTEROL [Concomitant]
  5. VITAMINS NOS [Concomitant]
  6. ALBUTEROL [Concomitant]

REACTIONS (4)
  - PNEUMONIA [None]
  - BRONCHITIS [None]
  - NASAL CONGESTION [None]
  - BLOOD GLUCOSE INCREASED [None]
